FAERS Safety Report 7558377-4 (Version None)
Quarter: 2011Q2

REPORT INFORMATION
  Report Type: 
  Country: None (occurrence: None)
  Receive Date: 20110620
  Receipt Date: 20110610
  Transmission Date: 20111010
  Serious: Yes (Other)
  Sender: FDA-Public Use
  Company Number: PHFR2011GB03170

PATIENT

DRUGS (2)
  1. ZOMETA [Suspect]
     Dosage: 4 MG EVERY 4 WEEKS
  2. SUNITINIB MALATE [Suspect]
     Dosage: 37.5 MG QD FOR 4 WEEKS THEN BREAK OF TREATMENT FOR 2 WEEKS TO COMPLETE 6 WEEK COURSE

REACTIONS (3)
  - ORAL DISORDER [None]
  - OSTEITIS [None]
  - OSTEONECROSIS OF JAW [None]
